FAERS Safety Report 26203676 (Version 1)
Quarter: 2025Q4

REPORT INFORMATION
  Report Type: Spontaneous
  Country: US (occurrence: US)
  Receive Date: 20251226
  Receipt Date: 20251226
  Transmission Date: 20260117
  Serious: No
  Sender: SOMERSET THERAPEUTICS, LLC
  Company Number: US-MIT-25-75-US-2025-SOM-SPO-00185

PATIENT
  Age: 38 Year
  Sex: Female

DRUGS (2)
  1. HALOPERIDOL DECANOATE [Suspect]
     Active Substance: HALOPERIDOL DECANOATE
     Indication: Schizophrenia
     Route: 030
     Dates: start: 20210105, end: 20210105
  2. HALOPERIDOL DECANOATE [Suspect]
     Active Substance: HALOPERIDOL DECANOATE
     Route: 030
     Dates: start: 20210202, end: 20210330

REACTIONS (6)
  - Cellulitis [Recovered/Resolved]
  - Induration [Recovered/Resolved]
  - Pyrexia [Recovered/Resolved]
  - Pain [Recovered/Resolved]
  - Chills [Recovered/Resolved]
  - Insulin resistance [Recovered/Resolved]
